FAERS Safety Report 8312598-1 (Version None)
Quarter: 2012Q2

REPORT INFORMATION
  Report Type: 
  Country: None (occurrence: None)
  Receive Date: 20120424
  Receipt Date: 20120420
  Transmission Date: 20120825
  Serious: Yes (Other)
  Sender: FDA-Public Use
  Company Number: ADR-2011-11695

PATIENT
  Sex: Female

DRUGS (2)
  1. BACLOFEN [Suspect]
     Indication: BACK PAIN
  2. BACLOFEN [Suspect]
     Indication: PAIN

REACTIONS (13)
  - DEVICE DISLOCATION [None]
  - HYPOAESTHESIA [None]
  - MASS [None]
  - CONSTIPATION [None]
  - PAIN [None]
  - IMPLANT SITE PAIN [None]
  - MUSCLE SPASMS [None]
  - BLADDER DISORDER [None]
  - INFLAMMATION [None]
  - PAIN IN EXTREMITY [None]
  - ROAD TRAFFIC ACCIDENT [None]
  - PARALYSIS [None]
  - SPINAL DISORDER [None]
